FAERS Safety Report 15198384 (Version 1)
Quarter: 2018Q3

REPORT INFORMATION
  Report Type: Spontaneous
  Country: US (occurrence: US)
  Receive Date: 20180725
  Receipt Date: 20180725
  Transmission Date: 20181010
  Serious: Yes (Other)
  Sender: FDA-Public Use
  Company Number: US-VIFOR (INTERNATIONAL) INC.-VIT-2018-07191

PATIENT
  Sex: Male

DRUGS (18)
  1. ERGOCALCIFEROL. [Concomitant]
     Active Substance: ERGOCALCIFEROL
  2. VITAMINS NOS [Concomitant]
     Active Substance: VITAMINS
  3. DULOXETINE HYDROCHLORIDE. [Concomitant]
     Active Substance: DULOXETINE HYDROCHLORIDE
  4. CLONIDINE HYDROCHLORIDE. [Concomitant]
     Active Substance: CLONIDINE HYDROCHLORIDE
  5. OMEGA 3 [Concomitant]
     Active Substance: OMEGA-3 FATTY ACIDS
  6. MAGNESIUM [Concomitant]
     Active Substance: MAGNESIUM
  7. ABILIFY [Concomitant]
     Active Substance: ARIPIPRAZOLE
  8. LOSARTAN POTASSIUM. [Concomitant]
     Active Substance: LOSARTAN POTASSIUM
  9. COLECALCIFEROL~~CALCIUM CITRATE [Concomitant]
  10. NORVASC [Concomitant]
     Active Substance: AMLODIPINE BESYLATE
  11. FOLIC ACID. [Concomitant]
     Active Substance: FOLIC ACID
  12. CYANOCOBALAMIN. [Concomitant]
     Active Substance: CYANOCOBALAMIN
  13. ELIQUIS [Concomitant]
     Active Substance: APIXABAN
  14. PROPRANOLOL HYDROCHLORIDE. [Concomitant]
     Active Substance: PROPRANOLOL HYDROCHLORIDE
  15. VELTASSA [Suspect]
     Active Substance: PATIROMER
     Indication: HYPERKALAEMIA
     Route: 048
     Dates: start: 20161102
  16. TEMAZEPAM. [Concomitant]
     Active Substance: TEMAZEPAM
  17. LAC?HYDRIN [Concomitant]
     Active Substance: AMMONIUM LACTATE
  18. PARACETAMOL [Concomitant]
     Active Substance: ACETAMINOPHEN

REACTIONS (1)
  - Chronic kidney disease [Unknown]
